FAERS Safety Report 9925872 (Version 1)
Quarter: 2014Q1

REPORT INFORMATION
  Report Type: Spontaneous
  Country: US (occurrence: US)
  Receive Date: 20140226
  Receipt Date: 20140226
  Transmission Date: 20141002
  Serious: No
  Sender: FDA-Public Use
  Company Number: US-GILEAD-2014-0095227

PATIENT
  Age: 61 Year
  Sex: Male

DRUGS (2)
  1. RANEXA [Suspect]
     Indication: MUSCLE TIGHTNESS
     Dosage: 500 MG, UNK
     Route: 048
     Dates: start: 201310
  2. RANEXA [Suspect]
     Indication: MYOCARDIAL INFARCTION

REACTIONS (2)
  - Muscle twitching [Unknown]
  - Tinnitus [Not Recovered/Not Resolved]
